FAERS Safety Report 23154983 (Version 1)
Quarter: 2023Q4

REPORT INFORMATION
  Report Type: Report from Study
  Country: US (occurrence: US)
  Receive Date: 20231107
  Receipt Date: 20231107
  Transmission Date: 20240110
  Serious: Yes (Other)
  Sender: FDA-Public Use
  Company Number: US-ABBVIE-5484484

PATIENT
  Age: 54 Year
  Sex: Male

DRUGS (2)
  1. RINVOQ [Suspect]
     Active Substance: UPADACITINIB
     Indication: Eczema
     Dosage: STRENGTH : 15 MG EXTEND RELEASE
     Route: 048
     Dates: start: 202211, end: 202304
  2. RINVOQ [Suspect]
     Active Substance: UPADACITINIB
     Indication: Eczema
     Dosage: STRENGTH : 15 MG EXTEND RELEASE
     Route: 048
     Dates: start: 202309

REACTIONS (3)
  - Large intestinal obstruction [Unknown]
  - Pruritus [Not Recovered/Not Resolved]
  - Ostomy bag placement [Unknown]

NARRATIVE: CASE EVENT DATE: 20230901
